FAERS Safety Report 12521729 (Version 1)
Quarter: 2016Q3

REPORT INFORMATION
  Report Type: Spontaneous
  Country: CH (occurrence: CH)
  Receive Date: 20160701
  Receipt Date: 20160701
  Transmission Date: 20161109
  Serious: Yes (Hospitalization)
  Sender: FDA-Public Use
  Company Number: CH-009507513-1606CHE014395

PATIENT
  Age: 42 Year
  Sex: Male

DRUGS (13)
  1. BACTRIM [Suspect]
     Active Substance: SULFAMETHOXAZOLE\TRIMETHOPRIM
     Dates: start: 20160507, end: 20160609
  2. FUNGIZONE [Concomitant]
     Active Substance: AMPHOTERICIN B
     Dates: start: 20160520, end: 20160609
  3. CYMEVENE CAPSULES [Suspect]
     Active Substance: GANCICLOVIR
     Dates: start: 20160508, end: 20160510
  4. VALCYTE [Suspect]
     Active Substance: VALGANCICLOVIR HYDROCHLORIDE
     Dates: start: 20160510, end: 20160514
  5. ACYCLOVIR SODIUM. [Concomitant]
     Active Substance: ACYCLOVIR SODIUM
     Dates: start: 20160527, end: 20160531
  6. INVANZ [Suspect]
     Active Substance: ERTAPENEM SODIUM
     Dates: start: 20160514, end: 20160609
  7. COLISTIN [Concomitant]
     Active Substance: COLISTIN
     Dates: start: 20160514, end: 20160609
  8. CANCIDAS [Suspect]
     Active Substance: CASPOFUNGIN ACETATE
     Dates: start: 20160507, end: 20160523
  9. ESOMEP [Suspect]
     Active Substance: ESOMEPRAZOLE
  10. MERONEM [Suspect]
     Active Substance: MEROPENEM
     Dates: start: 20160507, end: 20160514
  11. SPORANOX [Suspect]
     Active Substance: ITRACONAZOLE
     Dates: start: 20160509, end: 20160530
  12. NOXAFIL [Concomitant]
     Active Substance: POSACONAZOLE
     Dates: start: 20160530, end: 20160609
  13. VANCOCIN [Suspect]
     Active Substance: VANCOMYCIN HYDROCHLORIDE
     Dates: start: 20160512, end: 20160609

REACTIONS (10)
  - Surgical procedure repeated [None]
  - Lung disorder [None]
  - Lung transplant [None]
  - General physical health deterioration [None]
  - Sepsis [None]
  - Multiple organ dysfunction syndrome [None]
  - Pancytopenia [Not Recovered/Not Resolved]
  - Candida test positive [None]
  - Toxicity to various agents [None]
  - Haemofiltration [None]

NARRATIVE: CASE EVENT DATE: 20160516
